FAERS Safety Report 7760699 (Version 4)
Quarter: 2014Q1

REPORT INFORMATION
  Report Type: Spontaneous
  Country: US (occurrence: US)
  Receive Date: 20110114
  Receipt Date: 20140131
  Transmission Date: 20141002
  Serious: Yes (Hospitalization, Other)
  Sender: FDA-Public Use
  Company Number: US-BAYER-2011-003579

PATIENT
  Age: 16 Year
  Sex: Female

DRUGS (5)
  1. YAZ [Suspect]
     Indication: CONTRACEPTION
     Dosage: UNK
     Dates: start: 200907, end: 200908
  2. METHERGINE [Concomitant]
     Dosage: 2.5 MG, UNK
     Route: 048
     Dates: start: 20090710
  3. IBUPROFEN [Concomitant]
     Dosage: 600 MG, UNK
     Route: 048
     Dates: start: 20090710
  4. METRONIDAZOLE [Concomitant]
     Dosage: 0.75 %, UNK
     Route: 067
     Dates: start: 20090713
  5. PRENATAL [Concomitant]
     Dosage: UNK
     Route: 048
     Dates: start: 20090729

REACTIONS (2)
  - Cholelithiasis [None]
  - Cholecystitis [None]
